FAERS Safety Report 19896349 (Version 2)
Quarter: 2021Q4

REPORT INFORMATION
  Report Type: Spontaneous
  Country: CO (occurrence: CO)
  Receive Date: 20210929
  Receipt Date: 20211222
  Transmission Date: 20220304
  Serious: Yes (Other)
  Sender: FDA-Public Use
  Company Number: CO-PFIZER INC-202101275387

PATIENT
  Age: 81 Year
  Sex: Female

DRUGS (1)
  1. XELJANZ [Suspect]
     Active Substance: TOFACITINIB CITRATE
     Indication: Rheumatoid arthritis
     Dosage: 5 MG IN A UNSPECIFIED FREQUENCY
     Route: 048

REACTIONS (5)
  - Presbyacusis [Unknown]
  - General physical health deterioration [Unknown]
  - Cholelithiasis [Not Recovered/Not Resolved]
  - Renal cyst [Not Recovered/Not Resolved]
  - Skin disorder [Unknown]
